FAERS Safety Report 22655654 (Version 1)
Quarter: 2023Q2

REPORT INFORMATION
  Report Type: Spontaneous
  Country: FI (occurrence: FI)
  Receive Date: 20230629
  Receipt Date: 20230629
  Transmission Date: 20230721
  Serious: Yes (Hospitalization)
  Sender: FDA-Public Use
  Company Number: FI-PFIZER INC-PV202300112836

PATIENT
  Age: 16 Year
  Sex: Male

DRUGS (1)
  1. INFLIXIMAB [Suspect]
     Active Substance: INFLIXIMAB
     Indication: Inflammatory bowel disease
     Dosage: 600 MG, CYCLIC
     Route: 042
     Dates: start: 20220705, end: 20221111

REACTIONS (5)
  - Lung opacity [Recovered/Resolved]
  - Opportunistic infection [Recovered/Resolved]
  - Eosinophilic pneumonia [Recovered/Resolved]
  - Dyspnoea [Recovered/Resolved]
  - Organising pneumonia [Recovered/Resolved]

NARRATIVE: CASE EVENT DATE: 20220101
